FAERS Safety Report 7586841-0 (Version None)
Quarter: 2011Q3

REPORT INFORMATION
  Report Type: 
  Country: None (occurrence: None)
  Receive Date: 20110701
  Receipt Date: 20110629
  Transmission Date: 20111222
  Serious: Yes (Other)
  Sender: FDA-Public Use
  Company Number: DE-BRISTOL-MYERS SQUIBB COMPANY-15865272

PATIENT
  Age: 22 Year
  Sex: Male

DRUGS (4)
  1. NASONEX [Suspect]
  2. TIAPRIDE [Suspect]
  3. ABILIFY [Suspect]
     Route: 048
  4. OMEPRAZOLE [Suspect]

REACTIONS (1)
  - KERATOCONUS [None]
